FAERS Safety Report 11334175 (Version 1)
Quarter: 2015Q3

REPORT INFORMATION
  Report Type: Spontaneous
  Country: US (occurrence: US)
  Receive Date: 20150803
  Receipt Date: 20150803
  Transmission Date: 20151125
  Serious: No
  Sender: FDA-Public Use
  Company Number: US-SA-2014SA170757

PATIENT
  Age: 74 Year
  Sex: Female

DRUGS (1)
  1. AMBIEN CR [Suspect]
     Active Substance: ZOLPIDEM TARTRATE
     Indication: INSOMNIA
     Dosage: PRODUCT START DATE: FOR 10 YEARS
     Route: 065

REACTIONS (9)
  - Gait disturbance [Unknown]
  - Sleep disorder [Unknown]
  - Product use issue [Unknown]
  - Wrong technique in product usage process [Unknown]
  - Increased appetite [Not Recovered/Not Resolved]
  - Therapeutic response unexpected [Unknown]
  - Asthenia [Unknown]
  - Dizziness [Not Recovered/Not Resolved]
  - Intentional product use issue [Unknown]
